FAERS Safety Report 17887200 (Version 1)
Quarter: 2020Q2

REPORT INFORMATION
  Report Type: Spontaneous
  Country: US (occurrence: US)
  Receive Date: 20200612
  Receipt Date: 20200612
  Transmission Date: 20200714
  Serious: No
  Sender: FDA-Public Use
  Company Number: US-AUROBINDO-AUR-APL-2020-019364

PATIENT
  Sex: Male

DRUGS (1)
  1. OLANZAPINE TABLETS 5MG [Suspect]
     Active Substance: OLANZAPINE
     Indication: AUTISM SPECTRUM DISORDER
     Dosage: UNK
     Route: 065
     Dates: start: 201906

REACTIONS (3)
  - Muscle spasticity [Unknown]
  - Head titubation [Unknown]
  - Constipation [Unknown]

NARRATIVE: CASE EVENT DATE: 20200313
